FAERS Safety Report 5889005-1 (Version None)
Quarter: 2008Q3

REPORT INFORMATION
  Report Type: 
  Country: None (occurrence: None)
  Receive Date: 20080917
  Receipt Date: 20080917
  Transmission Date: 20090109
  Serious: Yes (Life-Threatening, Other)
  Sender: FDA-Public Use
  Company Number: None

PATIENT
  Sex: Female
  Weight: 83.9154 kg

DRUGS (2)
  1. CIPROFLOXACIN HCL [Suspect]
     Indication: INFECTIOUS MONONUCLEOSIS
     Dates: start: 20080910, end: 20080912
  2. CIPROFLOXACIN HCL [Suspect]
     Indication: PNEUMONIA
     Dates: start: 20080910, end: 20080912

REACTIONS (5)
  - ABDOMINAL PAIN [None]
  - BACK PAIN [None]
  - INFECTION [None]
  - PHARMACEUTICAL PRODUCT COMPLAINT [None]
  - RENAL FAILURE [None]
